FAERS Safety Report 23998316 (Version 1)
Quarter: 2024Q2

REPORT INFORMATION
  Report Type: Report from Study
  Country: ES (occurrence: ES)
  Receive Date: 20240621
  Receipt Date: 20240621
  Transmission Date: 20240715
  Serious: Yes (Hospitalization)
  Sender: FDA-Public Use
  Company Number: ES-TEVA-VS-3210761

PATIENT
  Age: 80 Year
  Sex: Female
  Weight: 72 kg

DRUGS (3)
  1. INDAPAMIDE [Suspect]
     Active Substance: INDAPAMIDE
     Indication: Hypertension
     Route: 048
     Dates: start: 20200101, end: 20221108
  2. LETROZOLE [Concomitant]
     Active Substance: LETROZOLE
     Route: 065
     Dates: start: 20220609
  3. PALBOCICLIB [Suspect]
     Active Substance: PALBOCICLIB
     Indication: Hormone receptor positive breast cancer
     Dosage: ONCE A DAY FOR 21 DAYS, FOLLOWED BY 7 DAYS OFF TREATMENT,
     Route: 048
     Dates: start: 20220609, end: 20221108

REACTIONS (1)
  - Hypercalcaemia [Recovered/Resolved]

NARRATIVE: CASE EVENT DATE: 20221108
